FAERS Safety Report 6668464-0 (Version None)
Quarter: 2010Q2

REPORT INFORMATION
  Report Type: 
  Country: None (occurrence: None)
  Receive Date: 20100406
  Receipt Date: 20100331
  Transmission Date: 20101027
  Serious: Yes (Death, Hospitalization)
  Sender: FDA-Public Use
  Company Number: PHEH2010US02572

PATIENT
  Sex: Female

DRUGS (15)
  1. TOBI [Suspect]
     Dosage: 300 MG
     Dates: start: 20100210
  2. MEROPENEM [Concomitant]
     Dosage: 1 G, BID
  3. CIPRO [Concomitant]
     Dosage: 500 MG, BID
     Route: 048
  4. PREDNISONE TAB [Concomitant]
     Dosage: 20 MG DAILY
     Route: 048
  5. MUCINEX [Concomitant]
     Dosage: 600 MG, BID
     Route: 048
  6. MIRALAX [Concomitant]
     Dosage: 17 GRAMS DAILY
     Route: 048
  7. TYLENOL-500 [Concomitant]
     Dosage: PM QHS
  8. SPIRIVA [Concomitant]
     Dosage: 18 MCG ONE INHALATION Q.A.M
  9. PULMICORT [Concomitant]
  10. IPRATROPIUM [Concomitant]
  11. XOPENEX [Concomitant]
     Dosage: ONE Q.I.D
  12. VITAMIN D3 [Concomitant]
     Dosage: 800 IU DAILY
     Route: 048
  13. MULTI-VITAMIN [Concomitant]
     Route: 048
  14. NEXIUM [Concomitant]
     Dosage: 40 MG  DAILY
     Route: 048
  15. MEGACE [Concomitant]
     Dosage: 30 MG DAILY
     Route: 048

REACTIONS (16)
  - BLOOD BILIRUBIN DECREASED [None]
  - BLOOD PRESSURE INCREASED [None]
  - BODY TEMPERATURE INCREASED [None]
  - BRONCHOSPASM [None]
  - DEATH [None]
  - DYSPNOEA [None]
  - GENERAL PHYSICAL HEALTH DETERIORATION [None]
  - HEART RATE INCREASED [None]
  - HYPERCAPNIA [None]
  - HYPERGLYCAEMIA [None]
  - INFECTION [None]
  - LUNG DISORDER [None]
  - RESPIRATORY RATE INCREASED [None]
  - SINUS TACHYCARDIA [None]
  - TACHYPNOEA [None]
  - UNRESPONSIVE TO STIMULI [None]
